FAERS Safety Report 10366598 (Version 1)
Quarter: 2014Q3

REPORT INFORMATION
  Report Type: Spontaneous
  Country: RU (occurrence: None)
  Receive Date: 20140804
  Receipt Date: 20140804
  Transmission Date: 20150326
  Serious: Yes (Life-Threatening)
  Sender: FDA-Public Use
  Company Number: FK201403016

PATIENT
  Age: 75 Year
  Sex: Male

DRUGS (3)
  1. INTRALIPID [Suspect]
     Active Substance: EGG PHOSPHOLIPIDS\GLYCERIN\SOYBEAN OIL
     Indication: PRODUCT USED FOR UNKNOWN INDICATION
     Route: 042
  2. RINGER LACTARE (RINGER-LACTATE) [Concomitant]
  3. AMINOSOL PROTEIN HYDROLYSATE) [Concomitant]

REACTIONS (1)
  - Pulmonary oedema [None]
